FAERS Safety Report 11654680 (Version 2)
Quarter: 2016Q1

REPORT INFORMATION
  Report Type: Spontaneous
  Country: US (occurrence: US)
  Receive Date: 20151023
  Receipt Date: 20160205
  Transmission Date: 20160525
  Serious: No
  Sender: FDA-Public Use
  Company Number: US-PFIZER INC-2015341819

PATIENT
  Age: 30 Year
  Sex: Female

DRUGS (3)
  1. ADVIL MIGRAINE [Suspect]
     Active Substance: IBUPROFEN
     Dosage: 2 DF, DAILY
     Dates: start: 20151009, end: 20151009
  2. ADVIL MIGRAINE [Suspect]
     Active Substance: IBUPROFEN
     Indication: MIGRAINE
     Dosage: 2 DF, DAILY
     Dates: start: 20151005
  3. ADVIL MIGRAINE [Suspect]
     Active Substance: IBUPROFEN
     Dosage: 4 DF, DAILY
     Dates: start: 20151008, end: 20151008

REACTIONS (3)
  - Drug ineffective [Not Recovered/Not Resolved]
  - Intentional product misuse [Unknown]
  - Headache [Unknown]

NARRATIVE: CASE EVENT DATE: 20151005
